FAERS Safety Report 9829266 (Version 1)
Quarter: 2014Q1

REPORT INFORMATION
  Report Type: Report from Study
  Country: US (occurrence: US)
  Receive Date: 20140120
  Receipt Date: 20140120
  Transmission Date: 20141002
  Serious: Yes (Death)
  Sender: FDA-Public Use
  Company Number: US-ROCHE-1334681

PATIENT
  Sex: Female

DRUGS (10)
  1. AVASTIN [Suspect]
     Indication: GASTRIC CANCER
     Route: 042
     Dates: start: 20120116
  2. KYTRIL [Suspect]
     Indication: PRODUCT USED FOR UNKNOWN INDICATION
     Route: 042
  3. IRINOTECAN [Concomitant]
     Route: 042
  4. BENADRYL (UNITED STATES) [Concomitant]
     Route: 048
  5. ZANTAC [Concomitant]
     Route: 048
  6. TYLENOL [Concomitant]
     Route: 065
  7. ATROPINE [Concomitant]
     Route: 042
  8. DECADRON [Concomitant]
     Route: 042
  9. CAMPTOSAR [Concomitant]
     Route: 042
  10. 5-FU [Concomitant]

REACTIONS (2)
  - Gastric cancer [Fatal]
  - Disease progression [Unknown]
